FAERS Safety Report 13976865 (Version 2)
Quarter: 2017Q4

REPORT INFORMATION
  Report Type: Report from Study
  Country: None (occurrence: ES)
  Receive Date: 20170915
  Receipt Date: 20171020
  Transmission Date: 20180321
  Serious: Yes (Death)
  Sender: FDA-Public Use
  Company Number: ES-ABBVIE-17P-144-2101989-00

PATIENT
  Age: 64 Year
  Sex: Male
  Weight: 99 kg

DRUGS (2)
  1. VENETOCLAX. [Suspect]
     Active Substance: VENETOCLAX
     Indication: CHRONIC LYMPHOCYTIC LEUKAEMIA
     Route: 048
     Dates: start: 20170824, end: 20170831
  2. TRIMETHOPRIM/SULFAMETHOXAZOLE [Concomitant]
     Active Substance: SULFAMETHOXAZOLE\TRIMETHOPRIM
     Indication: INFECTION PROPHYLAXIS
     Dosage: MONDAYS, WEDNESDAYS AND FRIDAYS

REACTIONS (7)
  - Pain in extremity [Fatal]
  - Hemiparesis [Fatal]
  - Cellulitis [Fatal]
  - Myositis [Fatal]
  - Depressed level of consciousness [Fatal]
  - Central nervous system lesion [Fatal]
  - Febrile neutropenia [Fatal]

NARRATIVE: CASE EVENT DATE: 20170827
